FAERS Safety Report 12712983 (Version 1)
Quarter: 2016Q3

REPORT INFORMATION
  Report Type: Report from Study
  Country: CA (occurrence: CA)
  Receive Date: 20160902
  Receipt Date: 20160902
  Transmission Date: 20161109
  Serious: Yes (Other)
  Sender: FDA-Public Use
  Company Number: CA-ABBVIE-16K-028-1715817-00

PATIENT
  Sex: Female

DRUGS (1)
  1. HUMIRA [Suspect]
     Active Substance: ADALIMUMAB
     Indication: CROHN^S DISEASE
     Route: 058
     Dates: start: 20160317

REACTIONS (3)
  - Abscess [Unknown]
  - Anal fistula [Not Recovered/Not Resolved]
  - Rectal abscess [Recovering/Resolving]

NARRATIVE: CASE EVENT DATE: 2016
